FAERS Safety Report 8049482-7 (Version None)
Quarter: 2012Q1

REPORT INFORMATION
  Report Type: 
  Country: None (occurrence: None)
  Receive Date: 20120117
  Receipt Date: 20120112
  Transmission Date: 20120608
  Serious: Yes (Death)
  Sender: FDA-Public Use
  Company Number: PE-PFIZER INC-2012010893

PATIENT
  Age: 71 Year
  Sex: Female

DRUGS (1)
  1. ZYVOX [Suspect]
     Indication: INFECTION
     Dosage: 600 MG
     Dates: end: 20110201

REACTIONS (1)
  - HEPATIC NEOPLASM MALIGNANT [None]
